FAERS Safety Report 6605100-3 (Version None)
Quarter: 2010Q1

REPORT INFORMATION
  Report Type: 
  Country: None (occurrence: None)
  Receive Date: 20100226
  Receipt Date: 20100218
  Transmission Date: 20100710
  Serious: Yes (Hospitalization)
  Sender: FDA-Public Use
  Company Number: US-ELI_LILLY_AND_COMPANY-US200910001857

PATIENT
  Sex: Male

DRUGS (1)
  1. HUMULIN R [Suspect]
     Dates: start: 19940101

REACTIONS (2)
  - RENAL FAILURE [None]
  - VISUAL IMPAIRMENT [None]
